FAERS Safety Report 20096008 (Version 3)
Quarter: 2021Q4

REPORT INFORMATION
  Report Type: Report from Study
  Country: BG (occurrence: BG)
  Receive Date: 20211122
  Receipt Date: 20211209
  Transmission Date: 20220303
  Serious: Yes (Death, Hospitalization)
  Sender: FDA-Public Use
  Company Number: BG-CELGENE-BGR-20211103791

PATIENT
  Sex: Male
  Weight: 80 kg

DRUGS (40)
  1. OZANIMOD [Suspect]
     Active Substance: OZANIMOD
     Indication: Colitis ulcerative
     Route: 048
     Dates: start: 20160915, end: 20161018
  2. OZANIMOD [Suspect]
     Active Substance: OZANIMOD
     Route: 048
     Dates: start: 20161123, end: 20170109
  3. OZANIMOD [Suspect]
     Active Substance: OZANIMOD
     Route: 048
     Dates: start: 20181004, end: 20181227
  4. OZANIMOD [Suspect]
     Active Substance: OZANIMOD
     Route: 048
     Dates: start: 20181227, end: 20190321
  5. OZANIMOD [Suspect]
     Active Substance: OZANIMOD
     Route: 048
     Dates: start: 20190321, end: 20190620
  6. OZANIMOD [Suspect]
     Active Substance: OZANIMOD
     Route: 048
     Dates: start: 20190620, end: 20190905
  7. OZANIMOD [Suspect]
     Active Substance: OZANIMOD
     Route: 048
     Dates: start: 20190905, end: 20191121
  8. OZANIMOD [Suspect]
     Active Substance: OZANIMOD
     Route: 048
     Dates: start: 20191121, end: 20200213
  9. OZANIMOD [Suspect]
     Active Substance: OZANIMOD
     Route: 048
     Dates: start: 20200213, end: 20200511
  10. OZANIMOD [Suspect]
     Active Substance: OZANIMOD
     Route: 048
     Dates: start: 20200511, end: 20200804
  11. OZANIMOD [Suspect]
     Active Substance: OZANIMOD
     Route: 048
     Dates: start: 20200804, end: 20201028
  12. OZANIMOD [Suspect]
     Active Substance: OZANIMOD
     Route: 048
     Dates: start: 20201028, end: 20210118
  13. OZANIMOD [Suspect]
     Active Substance: OZANIMOD
     Route: 048
     Dates: start: 20201028, end: 20210123
  14. OZANIMOD [Suspect]
     Active Substance: OZANIMOD
     Route: 048
     Dates: start: 20210118, end: 20210412
  15. OZANIMOD [Suspect]
     Active Substance: OZANIMOD
     Route: 048
     Dates: start: 20210412
  16. OZANIMOD [Suspect]
     Active Substance: OZANIMOD
     Route: 048
     Dates: start: 20210708, end: 20210928
  17. OZANIMOD [Suspect]
     Active Substance: OZANIMOD
     Route: 048
     Dates: start: 20161018, end: 20161123
  18. OZANIMOD [Suspect]
     Active Substance: OZANIMOD
     Route: 048
     Dates: start: 20170109, end: 20170222
  19. OZANIMOD [Suspect]
     Active Substance: OZANIMOD
     Route: 048
     Dates: start: 20170222, end: 20170517
  20. OZANIMOD [Suspect]
     Active Substance: OZANIMOD
     Route: 048
     Dates: start: 20170517, end: 20170810
  21. OZANIMOD [Suspect]
     Active Substance: OZANIMOD
     Route: 048
     Dates: start: 20170810, end: 20171106
  22. OZANIMOD [Suspect]
     Active Substance: OZANIMOD
     Route: 048
     Dates: start: 20171106, end: 20180125
  23. OZANIMOD [Suspect]
     Active Substance: OZANIMOD
     Route: 048
     Dates: start: 20180125, end: 20180419
  24. OZANIMOD [Suspect]
     Active Substance: OZANIMOD
     Route: 048
     Dates: start: 20180419, end: 20180712
  25. OZANIMOD [Suspect]
     Active Substance: OZANIMOD
     Route: 048
     Dates: start: 20180712, end: 20181004
  26. OZANIMOD [Suspect]
     Active Substance: OZANIMOD
     Route: 048
     Dates: start: 20210926
  27. Salofalk [Concomitant]
     Indication: Colitis ulcerative
     Dosage: 1500 MILLIGRAM
     Route: 048
     Dates: start: 201310
  28. ROSUVASTATIN [Concomitant]
     Active Substance: ROSUVASTATIN
     Indication: Hypertension
     Dosage: 10/14/1.25 MILLIGRAM
     Route: 048
     Dates: start: 20210505
  29. CHLOPHADON [Concomitant]
     Indication: Hypertension
     Dosage: 0.15/ 20 MILLIGRAM
     Route: 048
     Dates: start: 2013, end: 20210505
  30. ENDOFALK [Concomitant]
     Indication: Colonoscopy
     Dosage: 6 SACHETS
     Route: 048
     Dates: start: 20170809, end: 20170809
  31. ENDOFALK [Concomitant]
     Dosage: 6 SACHETS
     Route: 048
     Dates: start: 20180711, end: 20180711
  32. ENDOFALK [Concomitant]
     Dosage: 6 SACHETS
     Route: 048
     Dates: start: 20190619, end: 20190619
  33. ENDOFALK [Concomitant]
     Dosage: 6 SACHETS
     Route: 048
     Dates: start: 20200510, end: 20200510
  34. ENDOFALK [Concomitant]
     Dosage: 6 SACHETS
     Route: 048
     Dates: start: 20210414, end: 20210414
  35. PROPOFOL [Concomitant]
     Active Substance: PROPOFOL
     Indication: Colonoscopy
     Dosage: 300 MILLIGRAM
     Route: 041
     Dates: start: 20180712, end: 20180712
  36. PROPOFOL [Concomitant]
     Active Substance: PROPOFOL
     Dosage: 300 MILLIGRAM
     Route: 041
     Dates: start: 20180810, end: 20180810
  37. PROPOFOL [Concomitant]
     Active Substance: PROPOFOL
     Dosage: 230 MILLIGRAM
     Route: 041
     Dates: start: 20190620, end: 20190620
  38. PROPOFOL [Concomitant]
     Active Substance: PROPOFOL
     Dosage: 250 MILLIGRAM
     Route: 041
     Dates: start: 20200511, end: 20200511
  39. PROPOFOL [Concomitant]
     Active Substance: PROPOFOL
     Dosage: 320 MILLIGRAM
     Route: 041
     Dates: start: 20210415, end: 20210415
  40. PERINDOPRIL [Concomitant]
     Active Substance: PERINDOPRIL
     Indication: Hypertension
     Dosage: 10/14/1.25 MILLIGRAM
     Route: 048
     Dates: start: 20210505

REACTIONS (1)
  - COVID-19 [Fatal]

NARRATIVE: CASE EVENT DATE: 20211001
